FAERS Safety Report 10271954 (Version 1)
Quarter: 2014Q3

REPORT INFORMATION
  Report Type: Report from Study
  Country: US (occurrence: US)
  Receive Date: 20140702
  Receipt Date: 20140702
  Transmission Date: 20150326
  Serious: Yes (Other)
  Sender: FDA-Public Use
  Company Number: PHEH2014US013032

PATIENT
  Sex: Male

DRUGS (1)
  1. EXELON PATCH [Suspect]
     Active Substance: RIVASTIGMINE
     Dosage: 4.6 MG, UNK
     Route: 062

REACTIONS (3)
  - Muscle disorder [Unknown]
  - Parkinson^s disease [Unknown]
  - Dementia Alzheimer^s type [Unknown]
